FAERS Safety Report 8391394-3 (Version None)
Quarter: 2012Q2

REPORT INFORMATION
  Report Type: 
  Country: None (occurrence: None)
  Receive Date: 20120529
  Receipt Date: 20120519
  Transmission Date: 20120825
  Serious: Yes (Other)
  Sender: FDA-Public Use
  Company Number: DE-UCBSA-057757

PATIENT
  Age: 42 Year
  Sex: Female
  Weight: 60 kg

DRUGS (1)
  1. OCTADON [Suspect]
     Dosage: TOTAL AMOUNT -16 TABLETS

REACTIONS (4)
  - SUICIDE ATTEMPT [None]
  - SOMNOLENCE [None]
  - VOMITING [None]
  - AGITATION [None]
